FAERS Safety Report 9552095 (Version 2)
Quarter: 2013Q4

REPORT INFORMATION
  Report Type: Other
  Country: US (occurrence: US)
  Receive Date: 20130925
  Receipt Date: 20131008
  Transmission Date: 20140711
  Serious: No
  Sender: FDA-Public Use
  Company Number: PHEH2013US019886

PATIENT
  Sex: Female

DRUGS (9)
  1. TOBI [Suspect]
     Indication: CYSTIC FIBROSIS
     Dosage: UNK UKN, UNK
     Dates: start: 2009, end: 2010
  2. TOBI PODHALER [Suspect]
     Indication: CYSTIC FIBROSIS
     Dosage: UNK UKN, UNK
     Dates: start: 201307
  3. PULMOZYME [Concomitant]
     Dosage: UNK UKN, UNK
  4. PREVACID [Concomitant]
     Dosage: UNK UKN, UNK
  5. QVAR [Concomitant]
     Dosage: UNK UKN, UNK
  6. ALBUTEROL [Concomitant]
     Dosage: UNK UKN, UNK
  7. NASONEX [Concomitant]
     Dosage: UNK UKN, UNK
  8. AZITHROMYCIN [Concomitant]
     Dosage: UNK UKN, UNK
  9. ZYRTEC [Concomitant]
     Dosage: UNK UKN, UNK

REACTIONS (1)
  - No adverse event [Unknown]
